FAERS Safety Report 6760541-9 (Version None)
Quarter: 2010Q2

REPORT INFORMATION
  Report Type: 
  Country: None (occurrence: None)
  Receive Date: 20100607
  Receipt Date: 20100607
  Transmission Date: 20101027
  Serious: Yes (Life-Threatening, Other)
  Sender: FDA-Public Use
  Company Number: None

PATIENT
  Sex: Male
  Weight: 86.1834 kg

DRUGS (3)
  1. OXYCONTIN [Suspect]
     Indication: BACK PAIN
     Dosage: 360 6 BID BY MOUTH
     Route: 048
     Dates: start: 20020101
  2. OXYCONTIN [Suspect]
     Indication: BONE PAIN
     Dosage: 360 6 BID BY MOUTH
     Route: 048
     Dates: start: 20020101
  3. OXYCONTIN [Suspect]
     Indication: NECK PAIN
     Dosage: 360 6 BID BY MOUTH
     Route: 048
     Dates: start: 20020101

REACTIONS (2)
  - DRUG INEFFECTIVE [None]
  - DRUG WITHDRAWAL SYNDROME [None]
